FAERS Safety Report 5663571-3 (Version None)
Quarter: 2008Q1

REPORT INFORMATION
  Report Type: 
  Country: None (occurrence: None)
  Receive Date: 20080313
  Receipt Date: 20080220
  Transmission Date: 20080703
  Serious: No
  Sender: FDA-Public Use
  Company Number: US-BOEHRINGER INGELHEIM GMBH, GERMANY-2008-BP-02583BP

PATIENT
  Age: 59 Year
  Sex: Female

DRUGS (2)
  1. MICARDIS HCT [Suspect]
     Indication: HYPERTENSION
     Route: 048
     Dates: start: 20080101
  2. GEMIFLOXACIN MESYLATE [Concomitant]
     Indication: INFLUENZA
     Dates: start: 20080218

REACTIONS (2)
  - BALANCE DISORDER [None]
  - DIZZINESS [None]
